FAERS Safety Report 6957386-3 (Version None)
Quarter: 2010Q3

REPORT INFORMATION
  Report Type: 
  Country: None (occurrence: None)
  Receive Date: 20100826
  Receipt Date: 20100817
  Transmission Date: 20110219
  Serious: Yes (Hospitalization)
  Sender: FDA-Public Use
  Company Number: 2010SP002330

PATIENT
  Sex: Female

DRUGS (1)
  1. LUNESTA [Suspect]
     Dosage: 3 MG; ORAL
     Route: 048

REACTIONS (4)
  - AGITATION [None]
  - DELIRIUM [None]
  - DYSARTHRIA [None]
  - HALLUCINATION, VISUAL [None]
